FAERS Safety Report 9524944 (Version 2)
Quarter: 2013Q3

REPORT INFORMATION
  Report Type: Spontaneous
  Country: GB (occurrence: GB)
  Receive Date: 20130916
  Receipt Date: 20130916
  Transmission Date: 20140515
  Serious: Yes (Disabling)
  Sender: FDA-Public Use
  Company Number: GB-PFIZER INC-2013229899

PATIENT
  Age: 57 Year
  Sex: Female
  Weight: 76 kg

DRUGS (8)
  1. CHAMPIX [Suspect]
     Indication: SMOKING CESSATION THERAPY
     Dosage: 0.5 MG, 1X/DAY
     Route: 048
     Dates: start: 20100323, end: 20100326
  2. CHAMPIX [Suspect]
     Dosage: 0.5 MG, 2X/DAY
     Route: 048
     Dates: start: 20100327, end: 20100329
  3. ATENOLOL [Concomitant]
     Dosage: 100 MG, 1X/DAY IN MORNING
     Route: 048
     Dates: start: 1998
  4. SIMVASTATIN [Concomitant]
     Dosage: UNK
     Route: 048
  5. QUININE SULFATE [Concomitant]
     Dosage: 200 MG, 1X/DAY AT NIGHT
     Route: 048
     Dates: start: 2006
  6. BENDROFLUMETHIAZIDE [Concomitant]
     Dosage: 2.5 MG, 1X/DAY IN MORNING
     Route: 048
     Dates: start: 1998, end: 2012
  7. ENALAPRIL [Concomitant]
     Dosage: 20 MG, 1X/DAY IN MORNING
     Route: 048
     Dates: start: 1998
  8. ATORVASTATIN [Concomitant]
     Dosage: 20 MG, 1X/DAY, ONCE EVERY NIGHT
     Route: 048
     Dates: start: 1998

REACTIONS (5)
  - Dissociation [Recovered/Resolved]
  - Disturbance in attention [Recovered/Resolved]
  - Lethargy [Recovered/Resolved]
  - Muscular weakness [Recovered/Resolved]
  - Amnesia [Recovered/Resolved]
